FAERS Safety Report 7106042-X (Version None)
Quarter: 2010Q4

REPORT INFORMATION
  Report Type: 
  Country: None (occurrence: None)
  Receive Date: 20101018
  Receipt Date: 20090914
  Transmission Date: 20110411
  Serious: No
  Sender: FDA-Public Use
  Company Number: US-WYE-H10980009

PATIENT
  Age: 52 Year
  Sex: Female
  Weight: 90.35 kg

DRUGS (2)
  1. PREMARIN [Suspect]
     Indication: HORMONE THERAPY
     Dosage: 1 TABLET 1X PER 1 DAY, ORAL
     Route: 048
     Dates: start: 20090801
  2. CRESTOR [Concomitant]

REACTIONS (3)
  - INCREASED APPETITE [None]
  - VULVOVAGINAL MYCOTIC INFECTION [None]
  - WEIGHT INCREASED [None]
